FAERS Safety Report 19843074 (Version 1)
Quarter: 2021Q3

REPORT INFORMATION
  Report Type: Spontaneous
  Country: US (occurrence: US)
  Receive Date: 20210916
  Receipt Date: 20210916
  Transmission Date: 20211014
  Serious: Yes (Death, Other)
  Sender: FDA-Public Use
  Company Number: US-PFIZER INC-202101161853

PATIENT
  Age: 68 Year
  Sex: Male

DRUGS (4)
  1. NOREPINEPHRINE BITARTRATE. [Suspect]
     Active Substance: NOREPINEPHRINE BITARTRATE
     Dosage: UNK (0.06 MCG/KG/MIN)
  2. VASOPRESSIN. [Suspect]
     Active Substance: VASOPRESSIN
     Dosage: UNK (0.04 UNITS/MIN)
  3. NOREPINEPHRINE BITARTRATE. [Suspect]
     Active Substance: NOREPINEPHRINE BITARTRATE
     Dosage: UNK (0.04 TO 0.09 MCG/KG/MIN)
  4. MIDODRINE [Suspect]
     Active Substance: MIDODRINE
     Dosage: 20 MG, 3X/DAY

REACTIONS (1)
  - Intestinal ischaemia [Fatal]
